FAERS Safety Report 7185496-7 (Version None)
Quarter: 2010Q4

REPORT INFORMATION
  Report Type: 
  Country: None (occurrence: None)
  Receive Date: 20101222
  Receipt Date: 20101209
  Transmission Date: 20110411
  Serious: No
  Sender: FDA-Public Use
  Company Number: US-TYCO HEALTHCARE/MALLINCKRODT-T201002447

PATIENT
  Sex: Male

DRUGS (2)
  1. TECHNETIUM TC 99M SESTAMIBI [Suspect]
     Indication: NUCLEAR MAGNETIC RESONANCE IMAGING
     Dosage: UNK
     Route: 042
     Dates: start: 20101208, end: 20101208
  2. TECHNETIUM TC-99M [Concomitant]
     Indication: NUCLEAR MAGNETIC RESONANCE IMAGING
     Dosage: 13.5 MCI, SINGLE
     Route: 042
     Dates: start: 20101208, end: 20101208

REACTIONS (1)
  - DRUG INEFFECTIVE [None]
